FAERS Safety Report 16357179 (Version 6)
Quarter: 2020Q4

REPORT INFORMATION
  Report Type: Spontaneous
  Country: US (occurrence: US)
  Receive Date: 20190527
  Receipt Date: 20201020
  Transmission Date: 20210113
  Serious: Yes (Other)
  Sender: FDA-Public Use
  Company Number: US-AMGEN-USASP2019081044

PATIENT
  Age: 72 Year
  Sex: Female
  Weight: 82.09 kg

DRUGS (8)
  1. WELCHOL [Concomitant]
     Active Substance: COLESEVELAM HYDROCHLORIDE
  2. REPATHA [Suspect]
     Active Substance: EVOLOCUMAB
     Indication: BLOOD PRESSURE ABNORMAL
     Dosage: UNK
     Route: 065
  3. HUMIRA [Suspect]
     Active Substance: ADALIMUMAB
     Indication: CROHN^S DISEASE
     Dosage: 40 MILLIGRAM, Q2WK
     Route: 058
     Dates: start: 2017
  4. AZATHIOPRINE. [Concomitant]
     Active Substance: AZATHIOPRINE
     Indication: NEPHROLITHIASIS
  5. TRAMADOL. [Concomitant]
     Active Substance: TRAMADOL
     Indication: BACK PAIN
  6. PAROXETINE. [Concomitant]
     Active Substance: PAROXETINE
     Indication: DEPRESSION
  7. HUMIRA [Suspect]
     Active Substance: ADALIMUMAB
     Dosage: 40 MILLIGRAM, Q2WK
     Route: 058
  8. METOPROLOL. [Concomitant]
     Active Substance: METOPROLOL
     Indication: HYPERTENSION

REACTIONS (26)
  - Nephrolithiasis [Unknown]
  - Drug ineffective [Unknown]
  - Rash morbilliform [Unknown]
  - Exposure to contaminated device [Unknown]
  - Melanocytic naevus [Unknown]
  - Night sweats [Not Recovered/Not Resolved]
  - Skin disorder [Unknown]
  - Dry skin [Not Recovered/Not Resolved]
  - Headache [Not Recovered/Not Resolved]
  - Back pain [Not Recovered/Not Resolved]
  - Asthenia [Unknown]
  - Frequent bowel movements [Not Recovered/Not Resolved]
  - Hot flush [Recovering/Resolving]
  - Unevaluable event [Unknown]
  - Diarrhoea [Not Recovered/Not Resolved]
  - Rash macular [Unknown]
  - Alopecia [Recovering/Resolving]
  - Oral herpes [Not Recovered/Not Resolved]
  - Weight decreased [Unknown]
  - Fatigue [Not Recovered/Not Resolved]
  - Rash [Not Recovered/Not Resolved]
  - Rash pruritic [Unknown]
  - Drug hypersensitivity [Not Recovered/Not Resolved]
  - Defaecation urgency [Unknown]
  - Onychoclasis [Not Recovered/Not Resolved]
  - Bacterial infection [Unknown]

NARRATIVE: CASE EVENT DATE: 2017
